FAERS Safety Report 22239513 (Version 2)
Quarter: 2023Q2

REPORT INFORMATION
  Report Type: Spontaneous
  Country: AU (occurrence: AU)
  Receive Date: 20230421
  Receipt Date: 20230512
  Transmission Date: 20230722
  Serious: Yes (Life-Threatening, Other)
  Sender: FDA-Public Use
  Company Number: AU-TEVA-2023-AU-2877156

PATIENT
  Age: 26 Year
  Sex: Female
  Weight: 75 kg

DRUGS (8)
  1. AJOVY [Suspect]
     Active Substance: FREMANEZUMAB-VFRM
     Indication: Migraine
     Route: 058
     Dates: start: 202109
  2. AJOVY [Suspect]
     Active Substance: FREMANEZUMAB-VFRM
     Route: 058
     Dates: start: 202212, end: 20230304
  3. MODAFINIL [Concomitant]
     Active Substance: MODAFINIL
     Indication: Hypersomnia
     Dosage: 150 MILLIGRAM DAILY;
     Route: 048
  4. DEPO-PROVERA [Concomitant]
     Active Substance: MEDROXYPROGESTERONE ACETATE
     Indication: Contraception
     Dosage: EVERY 3 MONTHS
     Route: 030
     Dates: start: 2020
  5. APIXABAN [Concomitant]
     Active Substance: APIXABAN
     Indication: Anticoagulant therapy
     Dosage: 10 MILLIGRAM DAILY;
     Route: 048
     Dates: start: 202212
  6. ALVESCO [Concomitant]
     Active Substance: CICLESONIDE
     Indication: Asthma
     Dosage: 320 MICROGRAM DAILY; 2 PUFFS DAILY
     Route: 055
  7. HYDROCHLOROTHIAZIDE [Concomitant]
     Active Substance: HYDROCHLOROTHIAZIDE
     Indication: Hypertension
     Dosage: 25 MILLIGRAM DAILY;
     Route: 048
  8. IVABRADINE [Concomitant]
     Active Substance: IVABRADINE
     Indication: Tachycardia
     Dosage: 15 MILLIGRAM DAILY;
     Route: 048

REACTIONS (5)
  - Pulmonary embolism [Recovered/Resolved]
  - Hypertension [Not Recovered/Not Resolved]
  - Migraine [Unknown]
  - Therapeutic response shortened [Unknown]
  - Therapy partial responder [Unknown]

NARRATIVE: CASE EVENT DATE: 20221229
